FAERS Safety Report 10028970 (Version 1)
Quarter: 2014Q1

REPORT INFORMATION
  Report Type: Spontaneous
  Country: US (occurrence: US)
  Receive Date: 20140321
  Receipt Date: 20140321
  Transmission Date: 20141002
  Serious: No
  Sender: FDA-Public Use
  Company Number: US-009507513-1403USA005822

PATIENT
  Sex: Female

DRUGS (4)
  1. FOSAMAX [Suspect]
     Indication: OSTEOPOROSIS
     Dosage: 1 DF, QW
     Route: 048
  2. DULERA [Suspect]
     Dosage: UNK
     Dates: start: 201312
  3. VANCERIL [Concomitant]
  4. PROAIR (ALBUTEROL SULFATE) [Concomitant]

REACTIONS (2)
  - Osteopenia [Unknown]
  - Drug interaction [Unknown]
